FAERS Safety Report 4627855-X (Version None)
Quarter: 2005Q2

REPORT INFORMATION
  Report Type: 
  Country: None (occurrence: None)
  Receive Date: 20050401
  Receipt Date: 20050315
  Transmission Date: 20051028
  Serious: Yes (Life-Threatening, Hospitalization)
  Sender: FDA-Public Use
  Company Number: 200510143BCA

PATIENT
  Age: 63 Year
  Sex: Male

DRUGS (9)
  1. CIPROFLOXACIN HCL [Suspect]
     Indication: INFECTION
     Dosage: 1000 MG, TOTAL DAILY, ORAL
     Route: 048
     Dates: start: 20041207, end: 20041208
  2. CIPROFLOXACIN HCL [Suspect]
     Indication: TRIPLE VESSEL BYPASS GRAFT
     Dosage: 1000 MG, TOTAL DAILY, ORAL
     Route: 048
     Dates: start: 20041207, end: 20041208
  3. AVODART [Concomitant]
  4. MONOPRIL [Concomitant]
  5. PLAVIX [Concomitant]
  6. METOPROLOL TARTRATE [Concomitant]
  7. CRESTOR [Concomitant]
  8. PANTALOC [Concomitant]
  9. PROSCAR [Concomitant]

REACTIONS (2)
  - BODY TEMPERATURE FLUCTUATION [None]
  - DYSURIA [None]
